FAERS Safety Report 4533999-3 (Version None)
Quarter: 2004Q4

REPORT INFORMATION
  Report Type: 
  Country: None (occurrence: None)
  Receive Date: 20041221
  Receipt Date: 20041221
  Transmission Date: 20050328
  Serious: Yes (Hospitalization)
  Sender: FDA-Public Use
  Company Number: None

PATIENT
  Age: 57 Year
  Sex: Male
  Weight: 65 kg

DRUGS (3)
  1. PACLITAXEL [Suspect]
     Indication: LUNG NEOPLASM MALIGNANT
     Dosage: 86 MG 1 Q WK IV
     Route: 042
     Dates: start: 20040719, end: 20040802
  2. CARBOPLATIN [Suspect]
     Indication: LUNG NEOPLASM MALIGNANT
     Dosage: 199 MG 1 Q WEEK  IV
     Route: 042
     Dates: start: 20040719, end: 20040802
  3. OSI-774 [Suspect]
     Indication: LUNG NEOPLASM MALIGNANT
     Dosage: 150 MG 1 Q DAY PO
     Route: 048
     Dates: start: 20040719, end: 20040812

REACTIONS (1)
  - RESPIRATORY DISTRESS [None]
